FAERS Safety Report 5417304-6 (Version None)
Quarter: 2007Q3

REPORT INFORMATION
  Report Type: 
  Country: None (occurrence: None)
  Receive Date: 20070718
  Receipt Date: 20060803
  Transmission Date: 20080115
  Serious: Yes (Hospitalization, Other)
  Sender: FDA-Public Use
  Company Number: 2005139350

PATIENT
  Age: 66 Year
  Sex: Female
  Weight: 74.8435 kg

DRUGS (7)
  1. CELEBREX [Suspect]
     Indication: ARTHRITIS
     Dates: start: 20000101
  2. VIOXX [Concomitant]
  3. ALEVE [Concomitant]
  4. CODEINE SUL TAB [Concomitant]
  5. DEMEROL [Concomitant]
  6. PERCOCET [Concomitant]
  7. OXYCONTIN [Concomitant]

REACTIONS (1)
  - MYOCARDIAL INFARCTION [None]
